FAERS Safety Report 4614870-5 (Version None)
Quarter: 2005Q1

REPORT INFORMATION
  Report Type: 
  Country: None (occurrence: None)
  Receive Date: 20050318
  Receipt Date: 20050318
  Transmission Date: 20050727
  Serious: Yes (Hospitalization)
  Sender: FDA-Public Use
  Company Number: None

PATIENT
  Age: 20 Year
  Sex: Female
  Weight: 65.8 kg

DRUGS (6)
  1. LOVENOX [Suspect]
     Indication: CATHETER RELATED COMPLICATION
     Dosage: 30MG  BID  SUBCUTANEOUS
     Route: 058
     Dates: start: 20050311, end: 20050316
  2. LOVENOX [Suspect]
     Indication: PROPHYLAXIS
     Dosage: 30MG  BID  SUBCUTANEOUS
     Route: 058
     Dates: start: 20050311, end: 20050316
  3. COUMADIN [Suspect]
     Dosage: 7.5MG  QD  ORAL
     Route: 048
     Dates: start: 20050311, end: 20050316
  4. AMITRIPTYLINE HCL [Concomitant]
  5. MICRONASE [Concomitant]
  6. LEXAPRO [Concomitant]

REACTIONS (1)
  - HEPATITIS ACUTE [None]
